FAERS Safety Report 10920482 (Version 2)
Quarter: 2015Q3

REPORT INFORMATION
  Report Type: Report from Study
  Country: US (occurrence: US)
  Receive Date: 20150317
  Receipt Date: 20150804
  Transmission Date: 20151125
  Serious: Yes (Hospitalization)
  Sender: FDA-Public Use
  Company Number: PHEH2015US004613

PATIENT
  Age: 16 Year
  Sex: Female
  Weight: 49.89 kg

DRUGS (8)
  1. TOBI PODHALER [Suspect]
     Active Substance: TOBRAMYCIN
     Indication: LUNG DISORDER
     Dosage: UNK, QD (ONCE A DAY AT NIGHT)
     Route: 055
  2. SALINE [Concomitant]
     Active Substance: SODIUM CHLORIDE
     Indication: PRODUCT USED FOR UNKNOWN INDICATION
     Route: 065
  3. TOBI PODHALER [Suspect]
     Active Substance: TOBRAMYCIN
     Indication: CYSTIC FIBROSIS
     Dosage: 112 MG, BID
     Route: 055
     Dates: start: 201405
  4. ALBUTEROL. [Concomitant]
     Active Substance: ALBUTEROL
     Indication: PRODUCT USED FOR UNKNOWN INDICATION
     Route: 065
  5. ADVAIR HFA [Concomitant]
     Active Substance: FLUTICASONE PROPIONATE\SALMETEROL XINAFOATE
     Indication: PRODUCT USED FOR UNKNOWN INDICATION
     Route: 065
  6. TOBI [Suspect]
     Active Substance: TOBRAMYCIN
     Indication: LUNG DISORDER
  7. TOBI [Suspect]
     Active Substance: TOBRAMYCIN
     Indication: CYSTIC FIBROSIS
     Dosage: 1 DF, BID
     Route: 055
  8. DORNASE [Concomitant]
     Indication: PRODUCT USED FOR UNKNOWN INDICATION
     Route: 065

REACTIONS (3)
  - Cystic fibrosis [Recovered/Resolved]
  - Somnolence [Unknown]
  - Condition aggravated [Recovered/Resolved]

NARRATIVE: CASE EVENT DATE: 201406
